FAERS Safety Report 17120080 (Version 2)
Quarter: 2019Q4

REPORT INFORMATION
  Report Type: Report from Study
  Country: BR (occurrence: BR)
  Receive Date: 20191206
  Receipt Date: 20191216
  Transmission Date: 20200122
  Serious: Yes (Other)
  Sender: FDA-Public Use
  Company Number: NVSC2019BR052625

PATIENT
  Age: 65 Year
  Sex: Female

DRUGS (9)
  1. DIOVAN [Suspect]
     Active Substance: VALSARTAN
     Indication: HYPERTENSION
     Dosage: 320 MG, QD (USED FOR 3 STRAIGHT YEARS)
     Route: 048
     Dates: start: 201911
  2. ATENOLOL. [Concomitant]
     Active Substance: ATENOLOL
     Indication: HYPERTENSION
     Dosage: 1 DF, QD
     Route: 048
  3. METFORMIN [Concomitant]
     Active Substance: METFORMIN HYDROCHLORIDE
     Indication: TYPE 2 DIABETES MELLITUS
     Dosage: 500 MG, BID (STARTED 1 MONTH AGO)
     Route: 048
  4. CHLOORTALIDON [Concomitant]
     Indication: PRODUCT USED FOR UNKNOWN INDICATION
     Dosage: UNK
     Route: 065
  5. DIOVAN [Suspect]
     Active Substance: VALSARTAN
     Dosage: RESTARTED 3 MONTHS AGO
     Route: 065
  6. EUTHYROX [Concomitant]
     Active Substance: LEVOTHYROXINE SODIUM
     Indication: HYPOTHYROIDISM
     Dosage: 137 MG, QD (STARTED MANY YEARS AGO)
     Route: 048
  7. PURAN [Concomitant]
     Active Substance: LEVOTHYROXINE SODIUM
     Indication: HYPOTHYROIDISM
     Dosage: 1 DF, QD
     Route: 048
  8. VASLIP [Concomitant]
     Indication: BLOOD CHOLESTEROL INCREASED
     Dosage: 1 DF, QD
     Route: 048
     Dates: start: 20140210
  9. DIAMICRON [Concomitant]
     Active Substance: GLICLAZIDE
     Indication: DIABETES MELLITUS
     Dosage: 60 MG, BID (STARTED 1 MONTH AGO)
     Route: 048

REACTIONS (16)
  - Dyspnoea [Not Recovered/Not Resolved]
  - Dry mouth [Recovering/Resolving]
  - Nervousness [Unknown]
  - Feeling abnormal [Recovering/Resolving]
  - Chest discomfort [Recovering/Resolving]
  - Hydronephrosis [Unknown]
  - Localised infection [Recovering/Resolving]
  - Malaise [Recovering/Resolving]
  - Paraesthesia [Recovering/Resolving]
  - Product blister packaging issue [Unknown]
  - Muscular weakness [Not Recovered/Not Resolved]
  - Cough [Recovering/Resolving]
  - Diabetes mellitus [Not Recovered/Not Resolved]
  - Anxiety [Recovering/Resolving]
  - Influenza [Recovering/Resolving]
  - Memory impairment [Unknown]

NARRATIVE: CASE EVENT DATE: 201911
